FAERS Safety Report 7081279-7 (Version None)
Quarter: 2010Q4

REPORT INFORMATION
  Report Type: 
  Country: None (occurrence: None)
  Receive Date: 20101103
  Receipt Date: 20101025
  Transmission Date: 20110411
  Serious: Yes (Hospitalization)
  Sender: FDA-Public Use
  Company Number: SE-JNJFOC-20101006779

PATIENT
  Sex: Male

DRUGS (2)
  1. HALDOL [Suspect]
     Indication: PRODUCT USED FOR UNKNOWN INDICATION
     Route: 065
  2. HALDOL [Suspect]
     Route: 065

REACTIONS (4)
  - ATAXIA [None]
  - FALL [None]
  - OVERDOSE [None]
  - PRE-EXISTING DISEASE [None]
